FAERS Safety Report 7669302-X (Version None)
Quarter: 2011Q3

REPORT INFORMATION
  Report Type: 
  Country: None (occurrence: None)
  Receive Date: 20110808
  Receipt Date: 20110802
  Transmission Date: 20111222
  Serious: Yes (Disabling, Other)
  Sender: FDA-Public Use
  Company Number: PHHY2011US42237

PATIENT
  Sex: Female

DRUGS (9)
  1. HYDROCODONE BITARTRATE AND ACETAMINOPHEN [Concomitant]
     Dosage: 7.5/500
  2. VENLAFAXINE [Concomitant]
     Dosage: 75 MG, BID
  3. TRAZODONE HCL [Concomitant]
     Dosage: 200 MG, UNK
  4. SERTRALINE HYDROCHLORIDE [Concomitant]
     Dosage: 100 MG, QD
  5. RECLAST [Suspect]
     Dosage: UNK
     Route: 030
     Dates: start: 20101014
  6. ASPIRIN [Concomitant]
     Dosage: 81 MG, UNK
  7. OMEPRAZOLE [Concomitant]
  8. PRAVASTATIN [Concomitant]
     Dosage: 40 MG, QD
  9. IBUPROFEN [Concomitant]
     Dosage: 800 MG, BID

REACTIONS (11)
  - ARTHRALGIA [None]
  - MYALGIA [None]
  - DYSSTASIA [None]
  - DEPRESSION [None]
  - GROIN PAIN [None]
  - BALANCE DISORDER [None]
  - PAIN IN EXTREMITY [None]
  - HYPOKINESIA [None]
  - FALL [None]
  - MUSCULAR WEAKNESS [None]
  - BONE PAIN [None]
